FAERS Safety Report 9706831 (Version 1)
Quarter: 2013Q4

REPORT INFORMATION
  Report Type: Spontaneous
  Country: JP (occurrence: JP)
  Receive Date: 20131125
  Receipt Date: 20131125
  Transmission Date: 20140711
  Serious: Yes (Death)
  Sender: FDA-Public Use
  Company Number: PHHY2013JP134160

PATIENT
  Sex: Male

DRUGS (1)
  1. ONBREZ [Suspect]
     Dosage: 150 UG, UNK

REACTIONS (1)
  - Death [Fatal]
